FAERS Safety Report 11614428 (Version 1)
Quarter: 2015Q4

REPORT INFORMATION
  Report Type: Spontaneous
  Country: AU (occurrence: AU)
  Receive Date: 20151009
  Receipt Date: 20151009
  Transmission Date: 20160304
  Serious: Yes (Other)
  Sender: FDA-Public Use
  Company Number: AU-LUPIN PHARMACEUTICALS INC.-2015-02150

PATIENT
  Age: 47 Year
  Sex: Male

DRUGS (1)
  1. DESVENLAFAXINE GH XR 50 MG [Suspect]
     Active Substance: DESVENLAFAXINE
     Indication: PRODUCT USED FOR UNKNOWN INDICATION
     Route: 048
     Dates: start: 201506, end: 20150704

REACTIONS (4)
  - Suicidal ideation [Unknown]
  - Drug ineffective [Unknown]
  - Product substitution issue [Unknown]
  - Anger [Unknown]
